FAERS Safety Report 8489614-X (Version None)
Quarter: 2012Q3

REPORT INFORMATION
  Report Type: 
  Country: None (occurrence: None)
  Receive Date: 20120705
  Receipt Date: 20120704
  Transmission Date: 20120928
  Serious: Yes (Other)
  Sender: FDA-Public Use
  Company Number: CN-BAYER-2012-056531

PATIENT
  Age: 65 Year
  Sex: Male

DRUGS (2)
  1. GLIMEPIRIDE [Concomitant]
  2. GLUCOBAY [Suspect]
     Indication: TYPE 2 DIABETES MELLITUS
     Dosage: UNK
     Route: 048
     Dates: start: 20120301

REACTIONS (1)
  - DIABETES MELLITUS INADEQUATE CONTROL [None]
